FAERS Safety Report 24342140 (Version 2)
Quarter: 2024Q4

REPORT INFORMATION
  Report Type: Report from Study
  Country: US (occurrence: US)
  Receive Date: 20240920
  Receipt Date: 20241001
  Transmission Date: 20250115
  Serious: Yes (Other)
  Sender: ABBVIE
  Company Number: US-ABBVIE-5927924

PATIENT
  Age: 38 Year
  Sex: Male

DRUGS (1)
  1. RINVOQ [Suspect]
     Active Substance: UPADACITINIB
     Indication: Rheumatoid arthritis
     Dosage: EXTENDED RELEASE?STRENGTH: 15MG
     Route: 048
     Dates: start: 20240913

REACTIONS (2)
  - Ileostomy [Unknown]
  - Product residue present [Not Recovered/Not Resolved]

NARRATIVE: CASE EVENT DATE: 20240901
